FAERS Safety Report 20333744 (Version 3)
Quarter: 2022Q1

REPORT INFORMATION
  Report Type: Report from Study
  Country: BR (occurrence: BR)
  Receive Date: 20220113
  Receipt Date: 20220126
  Transmission Date: 20220424
  Serious: Yes (Hospitalization)
  Sender: FDA-Public Use
  Company Number: BR-JNJFOC-20211156257

PATIENT
  Age: 66 Year
  Sex: Male
  Weight: 71 kg

DRUGS (10)
  1. APALUTAMIDE [Suspect]
     Active Substance: APALUTAMIDE
     Indication: Prostate cancer
     Route: 048
     Dates: start: 20210824
  2. COVID-19 VACCINE [Concomitant]
     Indication: COVID-19 prophylaxis
     Dosage: COVID-19 VACCINE (CORONAVAC); COVID-19 VACCINE INACT (VERO) CZ02
     Route: 030
     Dates: start: 20210407
  3. COVID-19 VACCINE [Concomitant]
     Dosage: COVID-19 VACCINE (PFIZER); TOZINAMERAN
     Route: 030
     Dates: start: 20210920
  4. ZOLADEX [Concomitant]
     Active Substance: GOSERELIN ACETATE
     Indication: Prostate cancer
     Route: 058
     Dates: start: 20210816
  5. OMEPRAZOLE [Concomitant]
     Active Substance: OMEPRAZOLE
     Indication: Gastritis
     Route: 048
     Dates: start: 201707
  6. LOSARTAN [Concomitant]
     Active Substance: LOSARTAN
     Indication: Hypertension
     Route: 048
     Dates: start: 202001, end: 20211116
  7. LOSARTAN [Concomitant]
     Active Substance: LOSARTAN
     Route: 048
     Dates: start: 20211215
  8. HYDROCHLOROTHIAZIDE [Concomitant]
     Active Substance: HYDROCHLOROTHIAZIDE
     Indication: Hypertension
     Route: 048
     Dates: start: 202001, end: 20211116
  9. ALLOPURINOL [Concomitant]
     Active Substance: ALLOPURINOL
     Indication: Hyperuricaemia
     Route: 048
     Dates: start: 202001
  10. LORATADINE [Concomitant]
     Active Substance: LORATADINE
     Indication: Dust allergy
     Route: 048
     Dates: start: 20210717, end: 20210722

REACTIONS (2)
  - Upper gastrointestinal haemorrhage [Recovered/Resolved]
  - Anaemia [Recovered/Resolved]

NARRATIVE: CASE EVENT DATE: 20211109
